FAERS Safety Report 7556875-0 (Version None)
Quarter: 2011Q2

REPORT INFORMATION
  Report Type: 
  Country: None (occurrence: None)
  Receive Date: 20110620
  Receipt Date: 20110607
  Transmission Date: 20111010
  Serious: Yes (Life-Threatening)
  Sender: FDA-Public Use
  Company Number: AR-MEDIMMUNE-MEDI-0013271

PATIENT
  Sex: Male
  Weight: 4.365 kg

DRUGS (3)
  1. FERROUS SULFATE TAB [Concomitant]
     Route: 048
     Dates: start: 20110218
  2. SYNAGIS [Suspect]
     Route: 030
     Dates: start: 20110519, end: 20110519
  3. VITAMIN A-C-D [Concomitant]
     Route: 048
     Dates: start: 20110218

REACTIONS (3)
  - LOSS OF CONSCIOUSNESS [None]
  - APPARENT LIFE THREATENING EVENT [None]
  - APNOEA [None]
